FAERS Safety Report 17477495 (Version 3)
Quarter: 2020Q1

REPORT INFORMATION
  Report Type: Spontaneous
  Country: NL (occurrence: NL)
  Receive Date: 20200229
  Receipt Date: 20200331
  Transmission Date: 20200409
  Serious: Yes (Life-Threatening, Hospitalization, Other)
  Sender: FDA-Public Use
  Company Number: NL-AUROBINDO-AUR-APL-2020-009856

PATIENT
  Age: 78 Year
  Sex: Female
  Weight: 63 kg

DRUGS (2)
  1. FLUCLOXACILLIN [Interacting]
     Active Substance: FLUCLOXACILLIN
     Indication: STAPHYLOCOCCAL BACTERAEMIA
     Dosage: 6 GRAM, ONCE A DAY
     Route: 041
  2. PARACETAMOL [Suspect]
     Active Substance: ACETAMINOPHEN
     Indication: ANALGESIC THERAPY
     Dosage: 1 GRAM, FOUR TIMES/DAY (4 G ONCE A DAY)
     Route: 048

REACTIONS (7)
  - Drug interaction [Recovering/Resolving]
  - Metabolic encephalopathy [Recovering/Resolving]
  - Acute respiratory distress syndrome [Recovering/Resolving]
  - Aminoaciduria [Recovering/Resolving]
  - Metabolic acidosis [Recovering/Resolving]
  - Pyroglutamate increased [Recovering/Resolving]
  - Pulmonary oedema [Recovering/Resolving]
